FAERS Safety Report 8847695 (Version 2)
Quarter: 2012Q4

REPORT INFORMATION
  Report Type: 
  Country: US (occurrence: US)
  Receive Date: 20121018
  Receipt Date: 20121223
  Transmission Date: 20130627
  Serious: No
  Sender: FDA-Public Use
  Company Number: US-009507513-1210USA007286

PATIENT
  Age: 21 Year
  Sex: Female
  Weight: 106.12 kg

DRUGS (4)
  1. NEXPLANON [Suspect]
     Indication: CONTRACEPTION
     Dosage: 1 DF, UNK
     Route: 059
     Dates: start: 20121011, end: 20121011
  2. NEXPLANON [Suspect]
     Dosage: UNK
     Route: 059
     Dates: start: 20121011
  3. LABETALOL HYDROCHLORIDE [Concomitant]
     Dosage: UNK
  4. LABETALOL HYDROCHLORIDE [Concomitant]
     Dosage: UNK

REACTIONS (2)
  - Device difficult to use [Unknown]
  - No adverse event [Unknown]
